FAERS Safety Report 9447985 (Version 1)
Quarter: 2013Q3

REPORT INFORMATION
  Report Type: Spontaneous
  Country: DE (occurrence: None)
  Receive Date: 20130806
  Receipt Date: 20130806
  Transmission Date: 20140515
  Serious: Yes (Hospitalization, Disabling, Congenital Anomaly)
  Sender: FDA-Public Use
  Company Number: 2013P1013473

PATIENT
  Age: 22 Month
  Sex: Male

DRUGS (2)
  1. DEXAMETHASONE [Suspect]
     Indication: PROPHYLAXIS
     Route: 064
  2. DEXAMETHASONE [Suspect]
     Indication: ADRENOGENITAL SYNDROME
     Route: 064

REACTIONS (8)
  - Maternal drugs affecting foetus [None]
  - Encephalopathy [None]
  - Cerebral ischaemia [None]
  - Fall [None]
  - Loss of consciousness [None]
  - Hypoglycaemia [None]
  - Diarrhoea [None]
  - Vomiting [None]
